FAERS Safety Report 23757266 (Version 1)
Quarter: 2024Q2

REPORT INFORMATION
  Report Type: Spontaneous
  Country: US (occurrence: None)
  Receive Date: 20240418
  Receipt Date: 20240418
  Transmission Date: 20240716
  Serious: No
  Sender: FDA-Public Use
  Company Number: None

PATIENT
  Age: 62 Year
  Sex: Female
  Weight: 71.1 kg

DRUGS (8)
  1. MONTELUKAST [Suspect]
     Active Substance: MONTELUKAST SODIUM
     Indication: Asthma
     Dates: start: 20200401, end: 20240101
  2. ADVAIR HFA [Concomitant]
     Active Substance: FLUTICASONE PROPIONATE\SALMETEROL XINAFOATE
  3. CLARITAIN [Concomitant]
  4. FLONASE [Concomitant]
     Active Substance: FLUTICASONE PROPIONATE
  5. ALBUTEROL [Concomitant]
     Active Substance: ALBUTEROL
  6. VITAMIN D [Concomitant]
     Active Substance: VITAMIN D NOS
  7. VITAMIN B COMPLEX [Concomitant]
     Active Substance: CYANOCOBALAMIN\DEXPANTHENOL\NIACINAMIDE\PYRIDOXINE HYDROCHLORIDE\RIBOFLAVIN 5^-PHOSPHATE SODIUM\THIA
  8. PROBIOTICS NOS [Concomitant]
     Active Substance: PROBIOTICS NOS

REACTIONS (18)
  - Withdrawal syndrome [None]
  - Anxiety [None]
  - Abdominal distension [None]
  - Arthralgia [None]
  - Headache [None]
  - Dizziness [None]
  - Rash [None]
  - Muscular weakness [None]
  - Tremor [None]
  - Eosinophilia [None]
  - Insomnia [None]
  - Dyspepsia [None]
  - Sinusitis [None]
  - Nasal congestion [None]
  - Cough [None]
  - Contusion [None]
  - Palpitations [None]
  - Paraesthesia [None]
